FAERS Safety Report 6673390-7 (Version None)
Quarter: 2010Q2

REPORT INFORMATION
  Report Type: 
  Country: None (occurrence: None)
  Receive Date: 20100408
  Receipt Date: 20100401
  Transmission Date: 20101027
  Serious: Yes (Other)
  Sender: FDA-Public Use
  Company Number: PHHO2010DE05004

PATIENT
  Sex: Female
  Weight: 84 kg

DRUGS (2)
  1. TASIGNA [Suspect]
     Indication: CHRONIC MYELOID LEUKAEMIA
     Dosage: 400 MG, BID
     Route: 048
     Dates: start: 20080219, end: 20100318
  2. PRAVASTATIN [Concomitant]
     Indication: HYPERCHOLESTEROLAEMIA
     Dosage: UNK
     Dates: start: 20090425, end: 20100228

REACTIONS (4)
  - ATRIAL FIBRILLATION [None]
  - ATRIAL TACHYCARDIA [None]
  - DYSPNOEA EXERTIONAL [None]
  - ELECTROCARDIOGRAM QT PROLONGED [None]
